FAERS Safety Report 11128672 (Version 2)
Quarter: 2015Q3

REPORT INFORMATION
  Report Type: Spontaneous
  Country: CZ (occurrence: CZ)
  Receive Date: 20150521
  Receipt Date: 20150708
  Transmission Date: 20151125
  Serious: Yes (Hospitalization, Other)
  Sender: FDA-Public Use
  Company Number: CZ-TEVA-564377ISR

PATIENT
  Age: 85 Year
  Sex: Female

DRUGS (2)
  1. FUROSEMID [Suspect]
     Active Substance: FUROSEMIDE
     Route: 048
  2. BISOPROLOL [Suspect]
     Active Substance: BISOPROLOL
     Route: 048

REACTIONS (1)
  - Systemic lupus erythematosus [Recovered/Resolved with Sequelae]
